FAERS Safety Report 4640133-8 (Version None)
Quarter: 2005Q2

REPORT INFORMATION
  Report Type: 
  Country: None (occurrence: None)
  Receive Date: 20050415
  Receipt Date: 20050415
  Transmission Date: 20051028
  Serious: Yes (Hospitalization)
  Sender: FDA-Public Use
  Company Number: None

PATIENT
  Age: 11 Year
  Sex: Female
  Weight: 30.8446 kg

DRUGS (2)
  1. BUPROPION SR 150 MG [Suspect]
     Indication: ATTENTION DEFICIT/HYPERACTIVITY DISORDER
     Dosage: 150 MG QAM ORAL
     Route: 048
     Dates: start: 20041031, end: 20041120
  2. BUPROPION SR 150 MG [Suspect]
     Indication: MAJOR DEPRESSION
     Dosage: 150 MG QAM ORAL
     Route: 048
     Dates: start: 20041031, end: 20041120

REACTIONS (4)
  - DEPRESSION [None]
  - DRUG EFFECT DECREASED [None]
  - EDUCATIONAL PROBLEM [None]
  - PHARMACEUTICAL PRODUCT COMPLAINT [None]
